FAERS Safety Report 18270191 (Version 1)
Quarter: 2020Q3

REPORT INFORMATION
  Report Type: Report from Study
  Country: CA (occurrence: CA)
  Receive Date: 20200915
  Receipt Date: 20200915
  Transmission Date: 20201103
  Serious: Yes (Other)
  Sender: FDA-Public Use
  Company Number: CA-JNJFOC-20200128413

PATIENT
  Age: 17 Year
  Sex: Male
  Weight: 86 kg

DRUGS (2)
  1. REMICADE [Suspect]
     Active Substance: INFLIXIMAB
     Dosage: 1275 MG
     Route: 042
     Dates: start: 20200130
  2. REMICADE [Suspect]
     Active Substance: INFLIXIMAB
     Indication: CROHN^S DISEASE
     Dosage: 820 MG,
     Route: 042
     Dates: start: 20180806

REACTIONS (5)
  - Drug level decreased [Unknown]
  - Incorrect dose administered [Unknown]
  - Lipase increased [Not Recovered/Not Resolved]
  - Anal abscess [Recovered/Resolved]
  - Off label use [Unknown]

NARRATIVE: CASE EVENT DATE: 20200130
